FAERS Safety Report 8395583-3 (Version None)
Quarter: 2012Q2

REPORT INFORMATION
  Report Type: 
  Country: None (occurrence: None)
  Receive Date: 20120530
  Receipt Date: 20110930
  Transmission Date: 20120825
  Serious: No
  Sender: FDA-Public Use
  Company Number: US-GLAXOSMITHKLINE-A0946608A

PATIENT
  Age: 35 Year
  Sex: Female

DRUGS (2)
  1. SUMATRIPTAN [Concomitant]
  2. VENTOLIN [Suspect]
     Indication: COUGH
     Dosage: 2PUFF VARIABLE DOSE
     Route: 055
     Dates: start: 20110929, end: 20110930

REACTIONS (2)
  - TREMOR [None]
  - PALPITATIONS [None]
